FAERS Safety Report 4856868-8 (Version None)
Quarter: 2005Q4

REPORT INFORMATION
  Report Type: 
  Country: None (occurrence: None)
  Receive Date: 20051219
  Receipt Date: 20050201
  Transmission Date: 20060501
  Serious: No
  Sender: FDA-Public Use
  Company Number: US-GLAXOSMITHKLINE-A0543215A

PATIENT
  Age: 54 Year
  Sex: Female

DRUGS (6)
  1. NICODERM CQ [Suspect]
     Dates: start: 20050110, end: 20050128
  2. KLONOPIN [Concomitant]
  3. CHLORAL HYDRATE [Concomitant]
  4. LAMICTAL [Concomitant]
  5. TOPAMAX [Concomitant]
  6. ZYPREXA [Concomitant]

REACTIONS (3)
  - BALANCE DISORDER [None]
  - GAIT DISTURBANCE [None]
  - SOMNOLENCE [None]
